FAERS Safety Report 8614749-8 (Version None)
Quarter: 2012Q3

REPORT INFORMATION
  Report Type: 
  Country: None (occurrence: None)
  Receive Date: 20120823
  Receipt Date: 20120817
  Transmission Date: 20120928
  Serious: Yes (Other)
  Sender: FDA-Public Use
  Company Number: US-PFIZER INC-2012202522

PATIENT
  Age: 39 Year
  Sex: Female
  Weight: 123.36 kg

DRUGS (10)
  1. NEURONTIN [Suspect]
     Indication: NEUROPATHY PERIPHERAL
     Dosage: UNK, 2X/DAY
     Route: 048
     Dates: start: 20070101, end: 20100901
  2. TOPAMAX [Concomitant]
     Dosage: 125 MG, 2X/DAY
  3. TYLENOL [Concomitant]
     Dosage: UNK
  4. VITAMIN A [Concomitant]
     Dosage: UNK
  5. VITAMIN E [Concomitant]
     Dosage: UNK
  6. VITAMIN B COMPLEX CAP [Concomitant]
     Dosage: UNK
  7. VITAMIN D [Concomitant]
     Dosage: UNK
  8. FLEXERIL [Concomitant]
     Dosage: UNK
  9. ASCORBIC ACID [Concomitant]
     Dosage: UNK
  10. TRAMADOL [Concomitant]
     Dosage: UNK

REACTIONS (7)
  - AUTOIMMUNE DISORDER [None]
  - PITUITARY TUMOUR [None]
  - COELIAC DISEASE [None]
  - HAEMOLYTIC ANAEMIA [None]
  - SJOGREN'S SYNDROME [None]
  - AUTOIMMUNE THYROIDITIS [None]
  - FIBROMYALGIA [None]
